FAERS Safety Report 6919735-1 (Version None)
Quarter: 2010Q3

REPORT INFORMATION
  Report Type: 
  Country: None (occurrence: None)
  Receive Date: 20100810
  Receipt Date: 20100810
  Transmission Date: 20110219
  Serious: Yes (Hospitalization)
  Sender: FDA-Public Use
  Company Number: None

PATIENT
  Age: 58 Year
  Sex: Female
  Weight: 88 kg

DRUGS (10)
  1. WARFARIN SODIUM [Suspect]
     Indication: ANTIPHOSPHOLIPID SYNDROME
     Dosage: 6X/WEEK ORAL   1X/WEEK ORAL
     Route: 048
     Dates: start: 20051227, end: 20100102
  2. ASPIRIN [Concomitant]
  3. FUROSEMIDE [Concomitant]
  4. SPIRONOLACTONE [Concomitant]
  5. PREDNISONE [Concomitant]
  6. HYDROXYCHLOROQUINE [Concomitant]
  7. ALBUTEROL [Concomitant]
  8. IRON [Concomitant]
  9. RABEPRAZOLE SODIUM [Concomitant]
  10. M.V.I. [Concomitant]

REACTIONS (2)
  - HAEMARTHROSIS [None]
  - INTERNATIONAL NORMALISED RATIO INCREASED [None]
